FAERS Safety Report 10910605 (Version 4)
Quarter: 2016Q1

REPORT INFORMATION
  Report Type: Report from Study
  Country: VE (occurrence: VE)
  Receive Date: 20150312
  Receipt Date: 20160322
  Transmission Date: 20160525
  Serious: Yes (Hospitalization, Other)
  Sender: FDA-Public Use
  Company Number: PHHY2015VE029361

PATIENT
  Age: 71 Year
  Sex: Male

DRUGS (7)
  1. LUCENTIS [Suspect]
     Active Substance: RANIBIZUMAB
     Indication: RETINAL OEDEMA
     Dosage: 0.23 ML, QMO
     Route: 031
     Dates: start: 2013
  2. LUCENTIS [Suspect]
     Active Substance: RANIBIZUMAB
     Indication: VISUAL IMPAIRMENT
     Dosage: 0.23 ML, QMO
     Route: 031
     Dates: start: 2014, end: 2014
  3. GENURIN [Concomitant]
     Indication: PRODUCT USED FOR UNKNOWN INDICATION
     Dosage: 200 MG, TID
     Route: 065
  4. DIOVAN [Suspect]
     Active Substance: VALSARTAN
     Dosage: 320 MG, QD
     Route: 048
     Dates: start: 2013
  5. EXFORGE [Suspect]
     Active Substance: AMLODIPINE BESYLATE\VALSARTAN
     Indication: HYPERTENSION
     Dosage: 1 DF (160/5 MG), QD
     Route: 065
  6. DIOVAN [Suspect]
     Active Substance: VALSARTAN
     Indication: HYPERTENSION
     Dosage: 160 ML, QD
     Route: 048
     Dates: start: 1998
  7. ISMO [Concomitant]
     Active Substance: ISOSORBIDE MONONITRATE
     Indication: CARDIOVASCULAR DISORDER
     Dosage: 40 MG, QD
     Route: 065

REACTIONS (11)
  - Pyrexia [Recovering/Resolving]
  - Cardiac disorder [Recovering/Resolving]
  - Malaise [Recovering/Resolving]
  - Visual acuity reduced [Unknown]
  - Eye discharge [Unknown]
  - Urinary retention [Recovering/Resolving]
  - Hypoacusis [Recovering/Resolving]
  - Prostatomegaly [Recovering/Resolving]
  - Mobility decreased [Unknown]
  - Diabetes mellitus [Recovering/Resolving]
  - Renal disorder [Recovering/Resolving]

NARRATIVE: CASE EVENT DATE: 201509
